FAERS Safety Report 16170028 (Version 1)
Quarter: 2019Q2

REPORT INFORMATION
  Report Type: Spontaneous
  Country: US (occurrence: US)
  Receive Date: 20190407
  Receipt Date: 20190407
  Transmission Date: 20190711
  Serious: No
  Sender: FDA-Public Use
  Company Number: None

PATIENT
  Age: 31 Year
  Sex: Female
  Weight: 65.77 kg

DRUGS (1)
  1. NEXPLANON [Suspect]
     Active Substance: ETONOGESTREL

REACTIONS (12)
  - Libido decreased [None]
  - Implant site erythema [None]
  - Device dislocation [None]
  - Implant site induration [None]
  - Implant site bruising [None]
  - Implant site swelling [None]
  - Yawning [None]
  - Fatigue [None]
  - Implant site pruritus [None]
  - Infection [None]
  - Device allergy [None]
  - Hypersomnia [None]

NARRATIVE: CASE EVENT DATE: 20190314
